FAERS Safety Report 16369310 (Version 1)
Quarter: 2019Q2

REPORT INFORMATION
  Report Type: Spontaneous
  Country: PL (occurrence: PL)
  Receive Date: 20190529
  Receipt Date: 20190529
  Transmission Date: 20190711
  Serious: Yes (Other)
  Sender: FDA-Public Use
  Company Number: PL-009507513-1905POL010453

PATIENT
  Age: 29 Year

DRUGS (2)
  1. PROPECIA [Suspect]
     Active Substance: FINASTERIDE
     Dosage: UNK
  2. NEZYR [Suspect]
     Active Substance: FINASTERIDE
     Dosage: UNK

REACTIONS (1)
  - Seminoma [Unknown]

NARRATIVE: CASE EVENT DATE: 201709
